FAERS Safety Report 9400215 (Version 1)
Quarter: 2013Q2

REPORT INFORMATION
  Report Type: Spontaneous
  Country: GB (occurrence: None)
  Receive Date: 20130415
  Receipt Date: 20130415
  Transmission Date: 20140414
  Serious: Yes (Other)
  Sender: FDA-Public Use
  Company Number: HRA-CDB20120144

PATIENT
  Age: 34 Year
  Sex: Female

DRUGS (1)
  1. ELLAONE [Suspect]
     Indication: POST COITAL CONTRACEPTION
     Dosage: 30 MG (30 MG, 1 IN 1 D)
     Dates: start: 20120217

REACTIONS (3)
  - Pregnancy after post coital contraception [None]
  - Abortion induced [None]
  - Maternal exposure timing unspecified [None]
